FAERS Safety Report 10042318 (Version 2)
Quarter: 2014Q2

REPORT INFORMATION
  Report Type: Spontaneous
  Country: FR (occurrence: FR)
  Receive Date: 20140327
  Receipt Date: 20140513
  Transmission Date: 20141212
  Serious: Yes (Hospitalization, Other)
  Sender: FDA-Public Use
  Company Number: FR-VERTEX PHARMACEUTICALS INC-2014-001507

PATIENT
  Age: 56 Year
  Sex: Female

DRUGS (7)
  1. INCIVO [Suspect]
     Indication: CHRONIC HEPATITIS C
     Dosage: 2250 MG, QD
     Route: 048
     Dates: start: 20130405, end: 20130628
  2. INCIVO [Suspect]
     Indication: HEPATITIS C
  3. RIBAVIRIN [Suspect]
     Indication: CHRONIC HEPATITIS C
     Dosage: 600 MG, QD
     Route: 048
     Dates: start: 20130405, end: 20130711
  4. PEGINTERFERON ALFA 2A [Suspect]
     Indication: CHRONIC HEPATITIS C
     Route: 058
     Dates: start: 20130405, end: 20130711
  5. THERALENE [Suspect]
     Indication: PRODUCT USED FOR UNKNOWN INDICATION
     Dosage: DOSAGE FORM: DROPS, 20 DROPS
     Route: 048
     Dates: start: 20130829, end: 20140121
  6. ZYPREXA [Concomitant]
     Indication: MENTAL DISORDER
     Dosage: 10 MG, UNK
     Route: 048
     Dates: start: 20131128, end: 20140121
  7. ZYPREXA [Concomitant]
     Dosage: 10 MG, UNK
     Route: 048

REACTIONS (2)
  - Suicide attempt [Recovered/Resolved]
  - Adverse event [Unknown]
